FAERS Safety Report 5567684-6 (Version None)
Quarter: 2007Q4

REPORT INFORMATION
  Report Type: 
  Country: None (occurrence: None)
  Receive Date: 20071214
  Receipt Date: 20071203
  Transmission Date: 20080405
  Serious: Yes (Other)
  Sender: FDA-Public Use
  Company Number: DSA_30965_2007

PATIENT
  Sex: Female

DRUGS (3)
  1. CARDIZEM LA [Suspect]
     Indication: DRUG USE FOR UNKNOWN INDICATION
     Dosage: (DF ORAL)
     Route: 048
  2. QUINARETIC [Suspect]
     Indication: DRUG USE FOR UNKNOWN INDICATION
     Dosage: (DF)
  3. CLONIDINE [Suspect]
     Indication: DRUG USE FOR UNKNOWN INDICATION
     Dosage: (DF)

REACTIONS (6)
  - ASTHMA [None]
  - CHRONIC OBSTRUCTIVE PULMONARY DISEASE [None]
  - DIABETES MELLITUS [None]
  - HEADACHE [None]
  - HYPERTENSION [None]
  - OSTEOARTHRITIS [None]
